FAERS Safety Report 5249169-X (Version None)
Quarter: 2007Q1

REPORT INFORMATION
  Report Type: 
  Country: None (occurrence: None)
  Receive Date: 20070223
  Receipt Date: 20070208
  Transmission Date: 20070707
  Serious: Yes (Hospitalization)
  Sender: FDA-Public Use
  Company Number: 2007RR-05737

PATIENT
  Sex: Female

DRUGS (4)
  1. ACETAMINOPHEN [Suspect]
     Dosage: 500 MG, ORAL
     Route: 048
  2. PAROXETINE HCL [Suspect]
     Dosage: 30 MG, QD
     Dates: start: 19991101, end: 20000801
  3. NUROFEN [Concomitant]
  4. CITALOPRAM HYDROBROMIDE [Concomitant]

REACTIONS (4)
  - DRUG WITHDRAWAL SYNDROME [None]
  - INTENTIONAL OVERDOSE [None]
  - SUICIDAL IDEATION [None]
  - SUICIDE ATTEMPT [None]
